FAERS Safety Report 21656100 (Version 1)
Quarter: 2022Q4

REPORT INFORMATION
  Report Type: Spontaneous
  Country: US (occurrence: None)
  Receive Date: 20221128
  Receipt Date: 20221128
  Transmission Date: 20230112
  Serious: No
  Sender: FDA-Public Use
  Company Number: None

PATIENT
  Sex: Female

DRUGS (1)
  1. LANREOTIDE ACETATE [Suspect]
     Active Substance: LANREOTIDE ACETATE
     Indication: Pancreatic carcinoma
     Dosage: 120MG MONTHLY SUBCUTANEOUS
     Route: 058
     Dates: start: 202210

REACTIONS (3)
  - Needle issue [None]
  - Accidental exposure to product [None]
  - Product dose omission issue [None]
